FAERS Safety Report 18571192 (Version 1)
Quarter: 2020Q4

REPORT INFORMATION
  Report Type: Spontaneous
  Country: US (occurrence: US)
  Receive Date: 20201202
  Receipt Date: 20201202
  Transmission Date: 20210114
  Serious: Yes (Hospitalization, Disabling, Other)
  Sender: FDA-Public Use
  Company Number: US-PURDUE-USA-2020-0177888

PATIENT
  Sex: Male

DRUGS (2)
  1. OXYCONTIN [Suspect]
     Active Substance: OXYCODONE HYDROCHLORIDE
     Indication: PAIN
     Dosage: 4800 MG (60 80MG), MONTHLY
     Route: 048
  2. FENTANYL. [Suspect]
     Active Substance: FENTANYL
     Indication: PAIN
     Dosage: UNK
     Route: 065

REACTIONS (9)
  - Shock [Unknown]
  - Unevaluable event [Unknown]
  - Depression [Unknown]
  - Impaired driving ability [Unknown]
  - Drug dependence [Unknown]
  - Hip arthroplasty [Unknown]
  - Pain [Unknown]
  - Emotional distress [Unknown]
  - Overdose [Unknown]

NARRATIVE: CASE EVENT DATE: 2008
